FAERS Safety Report 5157950-0 (Version None)
Quarter: 2006Q4

REPORT INFORMATION
  Report Type: 
  Country: None (occurrence: None)
  Receive Date: 20061116
  Receipt Date: 20061004
  Transmission Date: 20070319
  Serious: Yes (Hospitalization, Other)
  Sender: FDA-Public Use
  Company Number: 2006095923

PATIENT
  Age: 56 Year
  Sex: Female
  Weight: 76.2043 kg

DRUGS (1)
  1. CELEBREX [Suspect]
     Indication: ARTHRITIS
     Dosage: 200 MG (200 MG, FREQUENCY: 1-2X; INTERVAL: DAILY), ORAL
     Route: 048
     Dates: start: 20000401

REACTIONS (1)
  - CEREBROVASCULAR ACCIDENT [None]
